FAERS Safety Report 24659094 (Version 2)
Quarter: 2024Q4

REPORT INFORMATION
  Report Type: Report from Study
  Country: GT (occurrence: GT)
  Receive Date: 20241125
  Receipt Date: 20241128
  Transmission Date: 20250114
  Serious: Yes (Death, Life-Threatening, Hospitalization)
  Sender: NOVARTIS
  Company Number: GT-002147023-NVSC2024GT202868

PATIENT
  Age: 26 Year
  Sex: Male

DRUGS (1)
  1. MAYZENT [Suspect]
     Active Substance: SIPONIMOD
     Indication: Secondary progressive multiple sclerosis
     Dosage: 2 MG, QD
     Route: 048
     Dates: start: 20211027, end: 20240301

REACTIONS (7)
  - Hypovolaemic shock [Fatal]
  - Orthostatic hypotension [Fatal]
  - Diarrhoea [Fatal]
  - Immunodeficiency [Unknown]
  - Pulmonary histoplasmosis [Unknown]
  - General physical health deterioration [Unknown]
  - Product availability issue [Unknown]

NARRATIVE: CASE EVENT DATE: 20240301
